FAERS Safety Report 8815372 (Version 1)
Quarter: 2012Q4

REPORT INFORMATION
  Report Type: 
  Country: US (occurrence: US)
  Receive Date: 20120928
  Receipt Date: 20120928
  Transmission Date: 20130627
  Serious: Yes (Other)
  Sender: FDA-Public Use
  Company Number: US-ASTRAZENECA-2012SE73014

PATIENT
  Age: 59 Year
  Sex: Female
  Weight: 176.9 kg

DRUGS (13)
  1. SEROQUEL [Suspect]
     Indication: BIPOLAR DISORDER
     Route: 048
     Dates: start: 2007
  2. SEROQUEL [Suspect]
     Indication: BIPOLAR DISORDER
     Route: 048
     Dates: start: 2007
  3. LYRICA [Concomitant]
     Indication: FIBROMYALGIA
     Dates: start: 2011
  4. ENALAPRIL [Concomitant]
     Indication: HYPERTENSION
     Dates: start: 2009
  5. SPIRONOLACTONE [Concomitant]
     Indication: HYPERTENSION
     Dates: start: 2009
  6. OMEPRAZOLE [Concomitant]
     Indication: GASTROOESOPHAGEAL REFLUX DISEASE
     Dates: start: 2007
  7. SIMVASTATIN [Concomitant]
     Indication: BLOOD CHOLESTEROL INCREASED
     Dates: start: 2009
  8. PLAQUENIL [Concomitant]
     Indication: SYSTEMIC LUPUS ERYTHEMATOSUS
     Dates: start: 1997
  9. HYDROCODONE [Concomitant]
     Indication: PAIN
     Dosage: 7.5/ 500 MG, QID
     Dates: start: 1998
  10. SOMA [Concomitant]
     Indication: MYALGIA
     Dates: start: 1997
  11. EFFEXOR [Concomitant]
     Indication: BIPOLAR DISORDER
     Dates: start: 2007
  12. TRAZODONE [Concomitant]
     Indication: POOR QUALITY SLEEP
     Dates: start: 1998
  13. AMBIEN [Concomitant]
     Indication: POOR QUALITY SLEEP
     Dates: start: 2012

REACTIONS (11)
  - Overdose [Unknown]
  - Cardiac ventricular disorder [Unknown]
  - Gastrooesophageal reflux disease [Unknown]
  - Back pain [Unknown]
  - Insomnia [Unknown]
  - Mental impairment [Unknown]
  - Neck pain [Unknown]
  - Arthralgia [Unknown]
  - Weight increased [Unknown]
  - Intentional drug misuse [Unknown]
  - Off label use [Unknown]
